FAERS Safety Report 6519691-4 (Version None)
Quarter: 2009Q4

REPORT INFORMATION
  Report Type: 
  Country: None (occurrence: None)
  Receive Date: 20091228
  Receipt Date: 20091215
  Transmission Date: 20100525
  Serious: Yes (Death, Hospitalization, Other)
  Sender: FDA-Public Use
  Company Number: IL-PFIZER INC-2006099803

PATIENT
  Age: 70 Year
  Sex: Male

DRUGS (6)
  1. SUNITINIB MALATE [Suspect]
     Indication: METASTATIC RENAL CELL CARCINOMA
     Dosage: EVERY DAY, CYCLE NO. 21
     Route: 048
     Dates: start: 20060712, end: 20060808
  2. CLODRONATE DISODIUM [Concomitant]
     Route: 048
  3. DEXAMETHASONE [Concomitant]
     Route: 048
  4. DOXAZOSIN MESYLATE [Concomitant]
     Route: 048
  5. OMEPRADEX [Concomitant]
     Route: 048
  6. OXYCONTIN [Concomitant]
     Route: 048

REACTIONS (4)
  - DEHYDRATION [None]
  - RENAL FAILURE ACUTE [None]
  - THROMBOCYTOPENIA [None]
  - VOMITING [None]
